FAERS Safety Report 4558568-0 (Version None)
Quarter: 2005Q1

REPORT INFORMATION
  Report Type: 
  Country: None (occurrence: None)
  Receive Date: 20050121
  Receipt Date: 20050112
  Transmission Date: 20050727
  Serious: Yes (Hospitalization)
  Sender: FDA-Public Use
  Company Number: JP-BRISTOL-MYERS SQUIBB COMPANY-12825097

PATIENT
  Age: 71 Year
  Sex: Male

DRUGS (1)
  1. KENACORT [Suspect]
     Indication: RETINAL DETACHMENT
     Route: 031
     Dates: start: 20040330, end: 20040330

REACTIONS (4)
  - EYE ABSCESS [None]
  - POSTOPERATIVE INFECTION [None]
  - RETINAL DETACHMENT [None]
  - STAPHYLOCOCCAL INFECTION [None]
